FAERS Safety Report 4595838-4 (Version None)
Quarter: 2005Q1

REPORT INFORMATION
  Report Type: 
  Country: None (occurrence: None)
  Receive Date: 20050224
  Receipt Date: 20050208
  Transmission Date: 20050727
  Serious: Yes (Hospitalization)
  Sender: FDA-Public Use
  Company Number: 2005SE00785

PATIENT
  Age: 47 Year
  Sex: Female
  Weight: 90 kg

DRUGS (6)
  1. BELOC ZOK [Suspect]
     Indication: CARDIAC FAILURE
     Dosage: 25 MG DAILY PO
     Route: 048
     Dates: start: 20041217
  2. DELIX [Concomitant]
  3. ALDACTAZIDE [Concomitant]
  4. CORASPIN [Concomitant]
  5. NEVOFAM [Concomitant]
  6. DESAL [Concomitant]

REACTIONS (2)
  - LUNG INFECTION [None]
  - UPPER RESPIRATORY TRACT INFECTION [None]
